FAERS Safety Report 11883598 (Version 1)
Quarter: 2016Q1

REPORT INFORMATION
  Report Type: Spontaneous
  Country: US (occurrence: US)
  Receive Date: 20160101
  Receipt Date: 20160101
  Transmission Date: 20160526
  Serious: Yes (Death, Other)
  Sender: FDA-Public Use
  Company Number: US-CIPLA LTD.-2015US09820

PATIENT

DRUGS (5)
  1. CETUXIMAB [Suspect]
     Active Substance: CETUXIMAB
     Dosage: 250 MG/M2, WEEKLY MAINTENANCE DOSE
  2. GEMCITABINE [Suspect]
     Active Substance: GEMCITABINE\GEMCITABINE HYDROCHLORIDE
     Indication: PANCREATIC CARCINOMA
     Dosage: 200MG/M2/WEEK BEFORE DOSE ESCALATION
     Route: 065
  3. ZOLEDRONIC ACID [Suspect]
     Active Substance: ZOLEDRONIC ACID
     Indication: PANCREATIC CARCINOMA
     Dosage: PALLIATIVE
     Route: 065
  4. CETUXIMAB [Suspect]
     Active Substance: CETUXIMAB
     Indication: PANCREATIC CARCINOMA
     Dosage: 400 MG/M2, LOADING DOSE
  5. GEMCITABINE [Suspect]
     Active Substance: GEMCITABINE\GEMCITABINE HYDROCHLORIDE
     Dosage: PALLIATIVE
     Route: 065

REACTIONS (11)
  - Disease progression [Fatal]
  - Metastases to bone [Unknown]
  - Metastases to liver [Unknown]
  - Skin exfoliation [Unknown]
  - Dysarthria [Unknown]
  - Performance status decreased [Unknown]
  - Rash [Unknown]
  - Decreased appetite [Unknown]
  - Dysphagia [Unknown]
  - Fatigue [Unknown]
  - Weight decreased [Unknown]
